FAERS Safety Report 26206410 (Version 1)
Quarter: 2025Q4

REPORT INFORMATION
  Report Type: Spontaneous
  Country: US (occurrence: US)
  Receive Date: 20251229
  Receipt Date: 20251229
  Transmission Date: 20260118
  Serious: Yes (Other)
  Sender: TEVA
  Company Number: US-TEVA-VS-3405668

PATIENT

DRUGS (1)
  1. GRANIX [Suspect]
     Active Substance: TBO-FILGRASTIM
     Indication: Product used for unknown indication
     Route: 065
     Dates: start: 202512

REACTIONS (1)
  - Neutropenia [Not Recovered/Not Resolved]
